FAERS Safety Report 5423229-2 (Version None)
Quarter: 2007Q3

REPORT INFORMATION
  Report Type: 
  Country: None (occurrence: None)
  Receive Date: 20070730
  Receipt Date: 20070215
  Transmission Date: 20080115
  Serious: Yes (Other)
  Sender: FDA-Public Use
  Company Number: 200710083BWH

PATIENT
  Age: 60 Year
  Sex: Male

DRUGS (10)
  1. AVELOX [Suspect]
     Indication: ACUTE SINUSITIS
     Dosage: 400 MG, QD; ORAL
     Route: 048
     Dates: start: 20070110, end: 20070123
  2. ASMANEX TWISTHALER [Concomitant]
  3. VICODIN [Concomitant]
  4. SEREVENT [Concomitant]
  5. OMEPRAZOLE [Concomitant]
  6. ATENOLOL [Concomitant]
  7. ALPRAZOLAM [Concomitant]
  8. TERAZOSIN HCL [Concomitant]
  9. CITALOPRAM HYDROBROMIDE [Concomitant]
  10. ALBUTEROL [Concomitant]

REACTIONS (2)
  - HALLUCINATION, VISUAL [None]
  - MUSCLE TWITCHING [None]
